FAERS Safety Report 8048223-7 (Version None)
Quarter: 2012Q1

REPORT INFORMATION
  Report Type: 
  Country: None (occurrence: None)
  Receive Date: 20120113
  Receipt Date: 20120113
  Transmission Date: 20120608
  Serious: No
  Sender: FDA-Public Use
  Company Number: None

PATIENT
  Age: 52 Year
  Sex: Female

DRUGS (3)
  1. LANSOPRAZOLE [Suspect]
     Dates: start: 20100605, end: 20100607
  2. ELAVIL [Suspect]
     Dates: start: 20100417, end: 20100502
  3. PREDNISONE TAB [Concomitant]

REACTIONS (7)
  - LIVER DISORDER [None]
  - BLOOD ALKALINE PHOSPHATASE INCREASED [None]
  - HEPATOTOXICITY [None]
  - ALANINE AMINOTRANSFERASE INCREASED [None]
  - ABDOMINAL PAIN [None]
  - ASPARTATE AMINOTRANSFERASE INCREASED [None]
  - BLOOD BILIRUBIN INCREASED [None]
